FAERS Safety Report 20750505 (Version 1)
Quarter: 2022Q2

REPORT INFORMATION
  Report Type: Spontaneous
  Country: DE (occurrence: DE)
  Receive Date: 20220426
  Receipt Date: 20220426
  Transmission Date: 20220720
  Serious: Yes (Other)
  Sender: FDA-Public Use
  Company Number: DE-TORRENT-00022392

PATIENT
  Age: 11 Year
  Sex: Male

DRUGS (2)
  1. LAMOTRIGINE [Suspect]
     Active Substance: LAMOTRIGINE
     Indication: Seizure
     Dosage: UNKNOWN
     Route: 065
  2. OXCARBAZEPINE [Suspect]
     Active Substance: OXCARBAZEPINE
     Indication: Seizure
     Dosage: UNKNOWN
     Route: 065

REACTIONS (1)
  - Condition aggravated [Recovered/Resolved]
